FAERS Safety Report 8556444-X (Version None)
Quarter: 2012Q3

REPORT INFORMATION
  Report Type: 
  Country: None (occurrence: None)
  Receive Date: 20120801
  Receipt Date: 20120727
  Transmission Date: 20120928
  Serious: Yes (Other)
  Sender: FDA-Public Use
  Company Number: PHHY2012MX065640

PATIENT
  Age: 67 Year
  Sex: Male

DRUGS (6)
  1. JANUMET [Concomitant]
     Indication: BLOOD GLUCOSE INCREASED
     Dosage: 2 DF, PER DAY
     Dates: start: 20120101
  2. INSULIN [Concomitant]
     Indication: DIABETES MELLITUS
     Dosage: 52 IU, UNK
     Dates: start: 20120101
  3. EXFORGE [Suspect]
     Indication: HYPERTENSION
     Dosage: 1 TABLET (160/5 MG) PER DAY
     Dates: start: 20120201
  4. JANUMET [Concomitant]
     Indication: HYPERTENSION
  5. AUTRIN [Concomitant]
     Indication: ANAEMIA
     Dosage: 1 DF, PER DAY
     Dates: start: 20120601
  6. METOPROLOL TARTRATE [Concomitant]
     Indication: HYPERTENSION
     Dosage: 1 DF, PER DAY
     Dates: start: 20020101

REACTIONS (3)
  - PYREXIA [None]
  - PSEUDOMONAS INFECTION [None]
  - PROSTATIC DISORDER [None]
